FAERS Safety Report 4350842-6 (Version None)
Quarter: 2004Q2

REPORT INFORMATION
  Report Type: 
  Country: None (occurrence: None)
  Receive Date: 20040427
  Receipt Date: 20040414
  Transmission Date: 20050107
  Serious: Yes (Death)
  Sender: FDA-Public Use
  Company Number: F01200400791

PATIENT
  Age: 76 Year
  Sex: Male

DRUGS (4)
  1. CLOPIDOGREL BISULFATE [Suspect]
     Indication: ANGIOPATHY
     Dosage: 75 MG OD
     Route: 048
     Dates: end: 20040401
  2. ATORVASTATIN [Concomitant]
  3. ACETYL SALICYLATE (ACETYLSALICYLATE LYSINE) [Concomitant]
  4. RAMIPRIL [Concomitant]

REACTIONS (1)
  - LEFT VENTRICULAR FAILURE [None]
